FAERS Safety Report 7660313-7 (Version None)
Quarter: 2011Q3

REPORT INFORMATION
  Report Type: 
  Country: None (occurrence: None)
  Receive Date: 20110805
  Receipt Date: 20110804
  Transmission Date: 20111222
  Serious: Yes (Hospitalization)
  Sender: FDA-Public Use
  Company Number: CA-ABBOTT-11P-028-0842318-00

PATIENT
  Sex: Female

DRUGS (1)
  1. HUMIRA [Suspect]
     Indication: CROHN'S DISEASE
     Dates: start: 20110421, end: 20110702

REACTIONS (3)
  - PHARYNGITIS STREPTOCOCCAL [None]
  - PNEUMONIA [None]
  - INTESTINAL OBSTRUCTION [None]
